FAERS Safety Report 4666330-3 (Version None)
Quarter: 2005Q2

REPORT INFORMATION
  Report Type: 
  Country: None (occurrence: None)
  Receive Date: 20050517
  Receipt Date: 20050504
  Transmission Date: 20051028
  Serious: Yes (Other)
  Sender: FDA-Public Use
  Company Number: US_0503114459

PATIENT
  Age: 49 Year
  Sex: Female
  Weight: 80 kg

DRUGS (8)
  1. ZYPREXA [Suspect]
     Indication: BIPOLAR DISORDER
     Dosage: 2.5 MG AT BEDTIME
     Dates: start: 20000201
  2. ZYPREXA [Suspect]
     Indication: MANIA
     Dosage: 2.5 MG AT BEDTIME
     Dates: start: 20000201
  3. LIPITOR [Concomitant]
  4. ATENOLOL [Concomitant]
  5. EASPIRIN [Concomitant]
  6. CHLORPROMAZINE [Concomitant]
  7. ACCUPRIL [Concomitant]
  8. NORVASC [Concomitant]

REACTIONS (18)
  - ANAEMIA [None]
  - BLOOD ALKALINE PHOSPHATASE INCREASED [None]
  - BLOOD CHOLESTEROL INCREASED [None]
  - BLOOD TRIGLYCERIDES INCREASED [None]
  - BLOOD URINE PRESENT [None]
  - CATARACT [None]
  - CONDITION AGGRAVATED [None]
  - DIABETES MELLITUS NON-INSULIN-DEPENDENT [None]
  - MICROALBUMINURIA [None]
  - PYREXIA [None]
  - RETINOPATHY HYPERTENSIVE [None]
  - THERAPEUTIC RESPONSE UNEXPECTED [None]
  - URINARY TRACT INFECTION [None]
  - URINE ALBUMIN/CREATININE RATIO INCREASED [None]
  - VOMITING [None]
  - WEIGHT DECREASED [None]
  - WHITE BLOOD CELL COUNT INCREASED [None]
  - WHITE BLOOD CELLS URINE POSITIVE [None]
